FAERS Safety Report 25726557 (Version 2)
Quarter: 2025Q3

REPORT INFORMATION
  Report Type: Spontaneous
  Country: US (occurrence: US)
  Receive Date: 20250826
  Receipt Date: 20250911
  Transmission Date: 20251021
  Serious: No
  Sender: ALEMBIC
  Company Number: US-ALEMBIC PHARMACUETICALS LIMITED-2025SCAL001088

PATIENT

DRUGS (1)
  1. TEMAZEPAM [Suspect]
     Active Substance: TEMAZEPAM
     Indication: Sleep disorder
     Route: 048
     Dates: start: 20250803

REACTIONS (6)
  - Choking sensation [Unknown]
  - Retching [Unknown]
  - Throat irritation [Unknown]
  - Product physical issue [Unknown]
  - Cough [Unknown]
  - Dyspnoea [Unknown]
